FAERS Safety Report 9100450 (Version 4)
Quarter: 2013Q2

REPORT INFORMATION
  Report Type: Spontaneous
  Country: US (occurrence: US)
  Receive Date: 20130214
  Receipt Date: 20130513
  Transmission Date: 20140414
  Serious: Yes (Life-Threatening, Other)
  Sender: FDA-Public Use
  Company Number: PHEH2013US003589

PATIENT
  Age: 43 Year
  Sex: Female
  Weight: 63.49 kg

DRUGS (5)
  1. GILENYA [Suspect]
     Indication: MULTIPLE SCLEROSIS
     Dosage: 0.5 MG, QD
     Route: 048
     Dates: start: 20120229, end: 20130212
  2. EFFEXOR [Concomitant]
  3. VIT D [Concomitant]
  4. NEURONTIN [Concomitant]
  5. TRAZODONE [Concomitant]

REACTIONS (4)
  - Malignant melanoma [Recovered/Resolved with Sequelae]
  - Scar [Unknown]
  - Skin oedema [Unknown]
  - Dermatitis [Unknown]
